FAERS Safety Report 8203700-0 (Version None)
Quarter: 2012Q1

REPORT INFORMATION
  Report Type: 
  Country: None (occurrence: None)
  Receive Date: 20120308
  Receipt Date: 20120227
  Transmission Date: 20120608
  Serious: Yes (Other)
  Sender: FDA-Public Use
  Company Number: 2012AP000546

PATIENT
  Age: 60 Year
  Sex: Female

DRUGS (1)
  1. LATANOPROST [Suspect]
     Indication: GLAUCOMA
     Dosage: 2 GTT;EYE_DROP; OPH; HS
     Route: 047
     Dates: start: 20120213, end: 20120220

REACTIONS (2)
  - EYE IRRITATION [None]
  - ULCERATIVE KERATITIS [None]
